FAERS Safety Report 6527611-1 (Version None)
Quarter: 2010Q1

REPORT INFORMATION
  Report Type: 
  Country: None (occurrence: None)
  Receive Date: 20100105
  Receipt Date: 20091228
  Transmission Date: 20100710
  Serious: Yes (Death)
  Sender: FDA-Public Use
  Company Number: US-SANOFI-AVENTIS-2009SA011414

PATIENT
  Sex: Male
  Weight: 60 kg

DRUGS (2)
  1. LOVENOX [Suspect]
     Route: 058
     Dates: start: 20080101, end: 20090501
  2. ALL OTHER THERAPEUTIC PRODUCTS [Concomitant]

REACTIONS (1)
  - DEATH [None]
